FAERS Safety Report 4906070-6 (Version None)
Quarter: 2006Q1

REPORT INFORMATION
  Report Type: 
  Country: None (occurrence: None)
  Receive Date: 20060207
  Receipt Date: 20060207
  Transmission Date: 20060701
  Serious: Yes (Hospitalization)
  Sender: FDA-Public Use
  Company Number: None

PATIENT
  Age: 39 Year
  Sex: Male
  Weight: 90.7 kg

DRUGS (1)
  1. ENALAPRIL [Suspect]
     Dosage: 10 MG DAILY
     Dates: start: 20050707, end: 20051110

REACTIONS (3)
  - GASTROINTESTINAL DISORDER [None]
  - LABORATORY TEST ABNORMAL [None]
  - PANCREATITIS [None]
